FAERS Safety Report 4983008-7 (Version None)
Quarter: 2006Q2

REPORT INFORMATION
  Report Type: 
  Country: None (occurrence: None)
  Receive Date: 20060426
  Receipt Date: 20060418
  Transmission Date: 20061013
  Serious: Yes (Other)
  Sender: FDA-Public Use
  Company Number: PHFR2006GB01465

PATIENT
  Sex: Male

DRUGS (1)
  1. METHYLPHENIDATE HCL [Suspect]
     Indication: ATTENTION DEFICIT/HYPERACTIVITY DISORDER
     Dosage: 5 MG/DAY
     Route: 048
     Dates: start: 20060323, end: 20060323

REACTIONS (4)
  - BLOOD PRESSURE INCREASED [None]
  - HYPOTONIA [None]
  - LETHARGY [None]
  - PALLOR [None]
